FAERS Safety Report 15839351 (Version 1)
Quarter: 2019Q1

REPORT INFORMATION
  Report Type: Spontaneous
  Country: RO (occurrence: RO)
  Receive Date: 20190117
  Receipt Date: 20190117
  Transmission Date: 20190417
  Serious: Yes (Other)
  Sender: FDA-Public Use
  Company Number: RO-MYLANLABS-2019M1003779

PATIENT
  Sex: Male

DRUGS (3)
  1. FLUTICASONE. [Suspect]
     Active Substance: FLUTICASONE
     Indication: ASTHMA
     Dosage: UNK
  2. BUDESONIDE. [Suspect]
     Active Substance: BUDESONIDE
     Indication: ASTHMA
     Dosage: UNK
  3. BETAMETHASONE. [Suspect]
     Active Substance: BETAMETHASONE
     Indication: PRODUCT USED FOR UNKNOWN INDICATION
     Dosage: UNK

REACTIONS (9)
  - Diabetes mellitus [Unknown]
  - Contusion [Unknown]
  - Adrenal suppression [Unknown]
  - Hyperaemia [Unknown]
  - Muscle atrophy [Unknown]
  - Cholangitis [Unknown]
  - Cushing^s syndrome [Unknown]
  - Sepsis [Unknown]
  - Skin striae [Unknown]
